FAERS Safety Report 18106879 (Version 3)
Quarter: 2020Q3

REPORT INFORMATION
  Report Type: Spontaneous
  Country: JP (occurrence: JP)
  Receive Date: 20200803
  Receipt Date: 20200820
  Transmission Date: 20201103
  Serious: Yes (Hospitalization, Other)
  Sender: FDA-Public Use
  Company Number: JP-ELI_LILLY_AND_COMPANY-JP202007013121

PATIENT
  Age: 60 Year
  Sex: Female
  Weight: 54.4 kg

DRUGS (29)
  1. ADCIRCA [Suspect]
     Active Substance: TADALAFIL
     Indication: PULMONARY ARTERIAL HYPERTENSION
     Dosage: 20 MG, DAILY
     Route: 065
     Dates: end: 20170725
  2. NEXIUM [Concomitant]
     Active Substance: ESOMEPRAZOLE MAGNESIUM
     Indication: PRODUCT USED FOR UNKNOWN INDICATION
     Dosage: 20 MG, DAILY
  3. PREDONINE [Concomitant]
     Active Substance: PREDNISOLONE
     Indication: MIXED CONNECTIVE TISSUE DISEASE
     Dosage: 50 MG, DAILY
     Dates: end: 20170801
  4. ENDOXAN [CYCLOPHOSPHAMIDE MONOHYDRATE] [Concomitant]
     Active Substance: CYCLOPHOSPHAMIDE
     Dosage: 300 MG, DAILY
     Dates: start: 20171108, end: 20171108
  5. ENDOXAN [CYCLOPHOSPHAMIDE MONOHYDRATE] [Concomitant]
     Active Substance: CYCLOPHOSPHAMIDE
     Dosage: 300 MG, DAILY
     Dates: start: 20171206, end: 20171206
  6. ADCIRCA [Suspect]
     Active Substance: TADALAFIL
     Indication: MIXED CONNECTIVE TISSUE DISEASE
     Dosage: 40 MG, DAILY
     Route: 065
     Dates: start: 20170726
  7. UPTRAVI [Suspect]
     Active Substance: SELEXIPAG
     Dosage: 0.6 MG, BID
     Route: 048
     Dates: start: 20170907, end: 20171010
  8. ENDOXAN [CYCLOPHOSPHAMIDE MONOHYDRATE] [Concomitant]
     Active Substance: CYCLOPHOSPHAMIDE
     Indication: MIXED CONNECTIVE TISSUE DISEASE
     Dosage: 300 MG, DAILY
     Dates: start: 20170913, end: 20170913
  9. ENDOXAN [CYCLOPHOSPHAMIDE MONOHYDRATE] [Concomitant]
     Active Substance: CYCLOPHOSPHAMIDE
     Dosage: 300 MG, DAILY
     Dates: start: 20180112, end: 20180112
  10. CARVEDILOL. [Concomitant]
     Active Substance: CARVEDILOL
     Indication: MIXED CONNECTIVE TISSUE DISEASE
     Dosage: 2.5 MG, DAILY
  11. FUROSEMIDE. [Concomitant]
     Active Substance: FUROSEMIDE
     Indication: PRODUCT USED FOR UNKNOWN INDICATION
     Dosage: 40 MG, DAILY
     Dates: start: 20170906
  12. ENDOXAN [CYCLOPHOSPHAMIDE MONOHYDRATE] [Concomitant]
     Active Substance: CYCLOPHOSPHAMIDE
     Dosage: 300 MG, DAILY
     Dates: start: 20171011, end: 20171011
  13. UPTRAVI [Suspect]
     Active Substance: SELEXIPAG
     Indication: PULMONARY ARTERIAL HYPERTENSION
     Dosage: 0.2 MG, BID
     Route: 048
     Dates: start: 20170726, end: 20170808
  14. UPTRAVI [Suspect]
     Active Substance: SELEXIPAG
     Dosage: 0.8 MG, BID
     Route: 048
     Dates: start: 20171010, end: 20171121
  15. OPSUMIT [Concomitant]
     Active Substance: MACITENTAN
     Indication: PULMONARY ARTERIAL HYPERTENSION
     Dosage: 1 DOSAGE FORM, DAILY
  16. DAIPHEN [Concomitant]
     Active Substance: SULFAMETHOXAZOLE\TRIMETHOPRIM
     Indication: PRODUCT USED FOR UNKNOWN INDICATION
     Dosage: 1 DOSAGE FORM, DAILY
  17. PREDONINE [Concomitant]
     Active Substance: PREDNISOLONE
     Dosage: 15 MG, DAILY
     Dates: start: 20180112
  18. PREDONINE [Concomitant]
     Active Substance: PREDNISOLONE
     Dosage: 30 MG, DAILY
     Dates: start: 20170815, end: 20170926
  19. TANATRIL [Concomitant]
     Active Substance: IMIDAPRIL
     Indication: MIXED CONNECTIVE TISSUE DISEASE
     Dosage: 2.5 MG, DAILY
  20. UPTRAVI [Suspect]
     Active Substance: SELEXIPAG
     Indication: MIXED CONNECTIVE TISSUE DISEASE
     Dosage: 0.4 MG, BID
     Route: 048
     Dates: start: 20170809, end: 20170906
  21. UPTRAVI [Suspect]
     Active Substance: SELEXIPAG
     Dosage: 1 MG, BID
     Route: 048
     Dates: start: 20171122, end: 20190203
  22. PREDONINE [Concomitant]
     Active Substance: PREDNISOLONE
     Dosage: 20 MG, DAILY
     Dates: start: 20171011, end: 20180111
  23. UPTRAVI [Suspect]
     Active Substance: SELEXIPAG
     Dosage: 1 MG, BID
     Route: 048
     Dates: end: 20190627
  24. PREDONINE [Concomitant]
     Active Substance: PREDNISOLONE
     Dosage: 40 MG, DAILY
     Dates: start: 20170802, end: 20170814
  25. SPIRONOLACTONE. [Concomitant]
     Active Substance: SPIRONOLACTONE
     Indication: PRODUCT USED FOR UNKNOWN INDICATION
     Dosage: 25 MG, DAILY
     Dates: start: 20170906
  26. IRON [Concomitant]
     Active Substance: IRON
     Indication: ANAEMIA
  27. AZATHIOPRINE. [Suspect]
     Active Substance: AZATHIOPRINE
     Indication: MYELODYSPLASTIC SYNDROME
     Dosage: UNK UNK, UNKNOWN
     Route: 048
     Dates: end: 20180327
  28. BONALON [Concomitant]
     Active Substance: ALENDRONATE SODIUM
     Indication: PRODUCT USED FOR UNKNOWN INDICATION
     Dosage: 35 MG, DAILY
  29. PREDONINE [Concomitant]
     Active Substance: PREDNISOLONE
     Dosage: 25 MG, DAILY
     Dates: start: 20170927, end: 20171010

REACTIONS (8)
  - Hepatic function abnormal [Recovered/Resolved]
  - Myelodysplastic syndrome [Not Recovered/Not Resolved]
  - Diarrhoea [Recovered/Resolved]
  - Cardiac failure [Recovered/Resolved]
  - Eczema [Recovered/Resolved]
  - Decubitus ulcer [Not Recovered/Not Resolved]
  - Oedema peripheral [Recovered/Resolved]
  - Diarrhoea [Recovered/Resolved]

NARRATIVE: CASE EVENT DATE: 20170906
